FAERS Safety Report 21056474 (Version 1)
Quarter: 2022Q3

REPORT INFORMATION
  Report Type: Spontaneous
  Country: US (occurrence: None)
  Receive Date: 20220707
  Receipt Date: 20220707
  Transmission Date: 20221027
  Serious: Yes (Hospitalization)
  Sender: FDA-Public Use
  Company Number: None

PATIENT
  Sex: 0

DRUGS (3)
  1. PAXLOVID [Suspect]
     Active Substance: NIRMATRELVIR\RITONAVIR
     Indication: COVID-19
  2. LUNESTA [Concomitant]
     Active Substance: ESZOPICLONE
  3. TRAZODONE [Concomitant]
     Active Substance: TRAZODONE HYDROCHLORIDE

REACTIONS (5)
  - Syncope [None]
  - Benzodiazepine drug level increased [None]
  - Antidepressant drug level increased [None]
  - Drug interaction [None]
  - Sedation [None]

NARRATIVE: CASE EVENT DATE: 20220705
